FAERS Safety Report 12558367 (Version 1)
Quarter: 2016Q3

REPORT INFORMATION
  Report Type: Spontaneous
  Country: US (occurrence: US)
  Receive Date: 20160714
  Receipt Date: 20160714
  Transmission Date: 20161109
  Serious: No
  Sender: FDA-Public Use
  Company Number: US-GALDERMA-US16004186

PATIENT
  Age: 35 Year
  Sex: Female

DRUGS (4)
  1. EPIDUO FORTE [Concomitant]
     Active Substance: ADAPALENE\BENZOYL PEROXIDE
     Dosage: 0.3%/2.5%
     Route: 061
     Dates: start: 201504
  2. SPIRONOLACTONE. [Concomitant]
     Active Substance: SPIRONOLACTONE
     Dosage: 50 MG
     Route: 048
     Dates: start: 201503
  3. SOOLANTRA [Suspect]
     Active Substance: IVERMECTIN
     Indication: ACNE
     Route: 061
     Dates: start: 201602
  4. MARY KAY FACE WASH [Concomitant]
     Route: 061
     Dates: start: 201506

REACTIONS (2)
  - Intentional product use issue [Recovered/Resolved]
  - Therapeutic response unexpected [Recovered/Resolved]
